FAERS Safety Report 25407551 (Version 5)
Quarter: 2025Q3

REPORT INFORMATION
  Report Type: Spontaneous
  Country: US (occurrence: US)
  Receive Date: 20250606
  Receipt Date: 20250930
  Transmission Date: 20251020
  Serious: No
  Sender: CALLIDITAS THERAPEUTICS AB
  Company Number: US-Calliditas-2025CAL00886

PATIENT
  Age: 50 Year
  Sex: Female

DRUGS (2)
  1. TARPEYO [Suspect]
     Active Substance: BUDESONIDE
     Indication: IgA nephropathy
     Dosage: DOSE REDUCED TO 8 MG
     Route: 048
     Dates: start: 20250311, end: 20250323
  2. IRBESARTAN [Concomitant]
     Active Substance: IRBESARTAN

REACTIONS (10)
  - Dyspnoea [Unknown]
  - Oropharyngeal discomfort [Unknown]
  - Dyspnoea [Recovered/Resolved]
  - Contusion [Not Recovered/Not Resolved]
  - Peripheral swelling [Recovered/Resolved]
  - Oedema peripheral [Unknown]
  - Prescribed underdose [Unknown]
  - Hirsutism [Unknown]
  - Alopecia [Unknown]
  - Product dose omission issue [Unknown]

NARRATIVE: CASE EVENT DATE: 20250301
